FAERS Safety Report 9095459 (Version 1)
Quarter: 2013Q1

REPORT INFORMATION
  Report Type: Report from Study
  Country: US (occurrence: US)
  Receive Date: 20130131
  Receipt Date: 20130131
  Transmission Date: 20140127
  Serious: No
  Sender: FDA-Public Use
  Company Number: US-ABBOTT-12P-163-1015736-00

PATIENT
  Age: 54 Year
  Sex: Female

DRUGS (9)
  1. HUMIRA [Suspect]
     Indication: PSORIASIS
     Route: 058
     Dates: start: 20121121
  2. UNKNOWN MEDICATION [Concomitant]
     Indication: HYPERTENSION
  3. UNKNOWN PAIN MEDICATION [Concomitant]
     Indication: PSORIASIS
  4. UNKNOWN PAIN MEDICATION [Concomitant]
     Indication: BACK DISORDER
  5. UNKNOWN SINUS MEDICATION [Concomitant]
     Indication: SINUS DISORDER
  6. UNKNOWN MEDICATION [Concomitant]
     Indication: GASTRIC DISORDER
  7. ZANTAC [Concomitant]
     Indication: PRODUCT USED FOR UNKNOWN INDICATION
  8. UNKNOWN BREATHING TREATMENT MEDICATION [Concomitant]
     Indication: PRODUCT USED FOR UNKNOWN INDICATION
  9. ADVAIR [Concomitant]
     Indication: PRODUCT USED FOR UNKNOWN INDICATION

REACTIONS (3)
  - Decreased appetite [Not Recovered/Not Resolved]
  - Wrong technique in drug usage process [Not Recovered/Not Resolved]
  - Psoriasis [Not Recovered/Not Resolved]
